FAERS Safety Report 25758168 (Version 4)
Quarter: 2025Q4

REPORT INFORMATION
  Report Type: Report from Study
  Country: EU (occurrence: EU)
  Receive Date: 20250904
  Receipt Date: 20251020
  Transmission Date: 20260117
  Serious: Yes (Hospitalization, Other)
  Sender: ABBVIE
  Company Number: EU-ABBVIE-6443075

PATIENT
  Age: 67 Year
  Sex: Male

DRUGS (11)
  1. CARBIDOPA [Suspect]
     Active Substance: CARBIDOPA
     Indication: Dementia with Lewy bodies
     Dosage: 20 MG + 5 MG (VIA PEG)?FREQUENCY TEXT: MORN:16;MAINT:3.5;EXTR:5
     Route: 050
     Dates: start: 2025, end: 20250731
  2. CARBIDOPA [Suspect]
     Active Substance: CARBIDOPA
     Dosage: 20 MG + 5 MG?FREQUENCY TEXT: MORN:8;MAINT:2.8;EXTR:2
     Route: 050
     Dates: start: 20240110
  3. CARBIDOPA [Suspect]
     Active Substance: CARBIDOPA
     Dosage: 20 MG + 5 MG (VIA PEG)?MORNING DOSE 10CC; EXTRA DOSE 5CC; CONTINUOUS DOSE 4CC/H
     Route: 050
     Dates: start: 20250731, end: 202510
  4. CARBIDOPA [Suspect]
     Active Substance: CARBIDOPA
     Dosage: 20 MG + 5 MG (VIA PEG)?MORNING DOSE 10CC; EXTRA DOSE 5CC; CONTINUOUS DOSE 4CC/H
     Route: 050
     Dates: start: 202510
  5. Melamil [Concomitant]
     Indication: Product used for unknown indication
     Dosage: 1 TABLET?AT BEDTIME?START DATE TEXT: BEFORE DUODOPA
     Route: 048
  6. RIVOTRIL [Concomitant]
     Active Substance: CLONAZEPAM
     Indication: Product used for unknown indication
     Dosage: START DATE TEXT: BEFORE DUODOPA
     Route: 048
  7. MIDODRINE HYDROCHLORIDE [Concomitant]
     Active Substance: MIDODRINE HYDROCHLORIDE
     Indication: Product used for unknown indication
     Dosage: 4 TABLET?START DATE TEXT: BEFORE DUODOPA
     Route: 048
  8. MINIRIN [Concomitant]
     Active Substance: DESMOPRESSIN ACETATE
     Indication: Hypertonic bladder
     Dosage: 1 TABLET?AT BEDTIME?START DATE TEXT: BEFORE DUODOPA
     Route: 048
  9. PANTOPRAZOLE [Concomitant]
     Active Substance: PANTOPRAZOLE
     Indication: Product used for unknown indication
     Dosage: 1 TABLET?START DATE TEXT: BEFORE DUODOPA
     Route: 048
  10. QUETIAPINE [Concomitant]
     Active Substance: QUETIAPINE
     Indication: Product used for unknown indication
     Dosage: START DATE TEXT: BEFORE DUODOPA
     Route: 048
  11. BETAHISTINE [Concomitant]
     Active Substance: BETAHISTINE
     Indication: Product used for unknown indication
     Dosage: START DATE TEXT: BEFORE DUODOPA
     Route: 048

REACTIONS (8)
  - Urinary retention [Not Recovered/Not Resolved]
  - Speech disorder [Recovered/Resolved]
  - Aphasia [Recovered/Resolved]
  - Staring [Recovered/Resolved]
  - Urinary tract infection [Recovered/Resolved]
  - Abdominal distension [Not Recovered/Not Resolved]
  - Hyponatraemia [Not Recovered/Not Resolved]
  - Infection [Recovered/Resolved]

NARRATIVE: CASE EVENT DATE: 20250801
